FAERS Safety Report 5497429-X (Version None)
Quarter: 2007Q4

REPORT INFORMATION
  Report Type: 
  Country: None (occurrence: None)
  Receive Date: 20071025
  Receipt Date: 20070831
  Transmission Date: 20080405
  Serious: No
  Sender: FDA-Public Use
  Company Number: US-BRISTOL-MYERS SQUIBB COMPANY-13885959

PATIENT
  Age: 71 Year
  Sex: Female
  Weight: 78 kg

DRUGS (7)
  1. GLUCOPHAGE XR [Suspect]
     Route: 048
     Dates: start: 20070601
  2. PREMARIN [Concomitant]
  3. ZANTAC [Concomitant]
  4. SYNTHROID [Concomitant]
  5. ASPIRIN [Concomitant]
  6. VITAMIN E [Concomitant]
  7. SEROQUEL [Concomitant]

REACTIONS (3)
  - ABDOMINAL DISTENSION [None]
  - MEDICATION RESIDUE [None]
  - WEIGHT INCREASED [None]
